FAERS Safety Report 6273901-X (Version None)
Quarter: 2009Q3

REPORT INFORMATION
  Report Type: 
  Country: None (occurrence: None)
  Receive Date: 20090716
  Receipt Date: 20090702
  Transmission Date: 20100115
  Serious: Yes (Death)
  Sender: FDA-Public Use
  Company Number: 1000007363

PATIENT
  Age: 45 Year
  Sex: Male

DRUGS (2)
  1. ESCITALOPRAM [Suspect]
     Dosage: 20 MG (20 MG,K 1 IN 1 D), ORAL
     Route: 048
     Dates: start: 20090506
  2. ATHYMIL [Concomitant]

REACTIONS (1)
  - COMPLETED SUICIDE [None]
